FAERS Safety Report 9431767 (Version 4)
Quarter: 2014Q1

REPORT INFORMATION
  Report Type: Spontaneous
  Country: ES (occurrence: ES)
  Receive Date: 20130731
  Receipt Date: 20140113
  Transmission Date: 20141002
  Serious: Yes (Death, Life-Threatening, Hospitalization, Other)
  Sender: FDA-Public Use
  Company Number: ES-MERCK-1307ESP013911

PATIENT
  Age: 86 Year
  Sex: Male

DRUGS (8)
  1. JANUVIA [Suspect]
     Indication: DIABETES MELLITUS
     Dosage: 100 MG, QD
     Route: 048
     Dates: start: 20121029, end: 20130704
  2. LANTUS [Concomitant]
     Dosage: 14 IU DAILY (MORNINGS)
     Route: 058
     Dates: start: 201203
  3. SINTROM [Concomitant]
     Dosage: TOTAL DAILY DOSE 20 MG, QD
  4. LISINOPRIL [Concomitant]
     Indication: HYPERTENSION
     Dosage: TOTAL DAILY DOSE 2.5 MG
     Route: 048
  5. INDAPAMIDE [Concomitant]
     Dosage: UNK, QD
  6. HYDROCHLOROTHIAZIDE (+) VALSARTAN [Concomitant]
     Dosage: 300/12.5 MG, HALF TABLET DAILY
     Route: 048
  7. LERCANIDIPINE [Concomitant]
     Dosage: UNK, QD
  8. ALLOPURINOL [Concomitant]
     Dosage: TOTAL DAILY DOSE 100 MG, QD

REACTIONS (5)
  - Pancreatic carcinoma [Not Recovered/Not Resolved]
  - Aspiration [Fatal]
  - Condition aggravated [Not Recovered/Not Resolved]
  - Respiratory disorder [Not Recovered/Not Resolved]
  - Haemodynamic instability [Not Recovered/Not Resolved]
